FAERS Safety Report 7936682-7 (Version None)
Quarter: 2011Q4

REPORT INFORMATION
  Report Type: 
  Country: None (occurrence: None)
  Receive Date: 20111123
  Receipt Date: 20111121
  Transmission Date: 20120403
  Serious: Yes (Other)
  Sender: FDA-Public Use
  Company Number: US-PFIZER INC-2011133748

PATIENT
  Sex: Male

DRUGS (2)
  1. RAPAMUNE [Suspect]
     Indication: LIVER DISORDER
  2. RAPAMUNE [Suspect]
     Indication: RENAL DISORDER
     Dosage: 3 MG DAILY
     Dates: start: 20100603

REACTIONS (2)
  - DECREASED APPETITE [None]
  - ABDOMINAL PAIN UPPER [None]
